FAERS Safety Report 23271229 (Version 2)
Quarter: 2025Q1

REPORT INFORMATION
  Report Type: Report from Study
  Country: CA (occurrence: CA)
  Receive Date: 20231207
  Receipt Date: 20250129
  Transmission Date: 20250408
  Serious: Yes (Other)
  Sender: TAKEDA
  Company Number: CA-TAKEDA-2023TUS116301

PATIENT
  Sex: Male

DRUGS (5)
  1. VEDOLIZUMAB [Suspect]
     Active Substance: VEDOLIZUMAB
     Indication: Colitis ulcerative
  2. VEDOLIZUMAB [Suspect]
     Active Substance: VEDOLIZUMAB
  3. PENTASA [Concomitant]
     Active Substance: MESALAMINE
  4. GOSERELIN [Concomitant]
     Active Substance: GOSERELIN
     Indication: Prostatic disorder
     Dosage: UNK UNK, Q3MONTHS
  5. EPREX [Concomitant]
     Active Substance: ERYTHROPOIETIN
     Indication: Myelodysplastic syndrome

REACTIONS (7)
  - Haematochezia [Unknown]
  - Cerebrovascular accident [Unknown]
  - Anal pruritus [Unknown]
  - Dyschezia [Unknown]
  - Constipation [Unknown]
  - Haemorrhoids [Unknown]
  - Frequent bowel movements [Unknown]
